FAERS Safety Report 8128779-6 (Version None)
Quarter: 2012Q1

REPORT INFORMATION
  Report Type: 
  Country: None (occurrence: None)
  Receive Date: 20120103
  Receipt Date: 20110901
  Transmission Date: 20120608
  Serious: No
  Sender: FDA-Public Use
  Company Number: AE-2011-001273

PATIENT
  Age: 57 Year
  Sex: Female

DRUGS (7)
  1. PEGASYS [Concomitant]
  2. GLIPIZIDE [Concomitant]
  3. FOLIC ACID [Concomitant]
  4. INCIVEK [Suspect]
     Dosage: ORAL
     Route: 048
     Dates: start: 20110820, end: 20110820
  5. VITAMIN D [Concomitant]
  6. RIBAVIRIN [Concomitant]
  7. LISINOPRIL [Concomitant]

REACTIONS (3)
  - DRUG DOSE OMISSION [None]
  - NAUSEA [None]
  - EATING DISORDER [None]
